FAERS Safety Report 8325605-7 (Version None)
Quarter: 2012Q2

REPORT INFORMATION
  Report Type: 
  Country: None (occurrence: None)
  Receive Date: 20120501
  Receipt Date: 20120423
  Transmission Date: 20120825
  Serious: Yes (Hospitalization, Other)
  Sender: FDA-Public Use
  Company Number: FR-ROXANE LABORATORIES, INC.-2012-RO-01110RO

PATIENT
  Age: 3 Year
  Sex: Male

DRUGS (2)
  1. METHOTREXATE [Suspect]
     Indication: T-CELL TYPE ACUTE LEUKAEMIA
  2. MERCAPTOPURINE [Suspect]
     Indication: T-CELL TYPE ACUTE LEUKAEMIA

REACTIONS (3)
  - HAEMATEMESIS [None]
  - CRYPTOSPORIDIOSIS INFECTION [None]
  - CHOLANGITIS [None]
